FAERS Safety Report 16356823 (Version 1)
Quarter: 2019Q2

REPORT INFORMATION
  Report Type: Spontaneous
  Country: US (occurrence: US)
  Receive Date: 20190418
  Receipt Date: 20190418
  Transmission Date: 20190711
  Serious: Yes (Hospitalization)
  Sender: FDA-Public Use
  Company Number: None

PATIENT
  Age: 37 Year
  Sex: Female

DRUGS (6)
  1. MAKENA [Suspect]
     Active Substance: HYDROXYPROGESTERONE CAPROATE
     Indication: PREMATURE LABOUR
     Route: 058
     Dates: start: 20190327
  2. ACYCLOVIR. [Concomitant]
     Active Substance: ACYCLOVIR
  3. HUMULIN NOS [Concomitant]
     Active Substance: INSULIN HUMAN
  4. INSULIN SYR [Concomitant]
  5. PRE-NATAL TAB [Concomitant]
  6. FREESTYLE [Concomitant]

REACTIONS (1)
  - Hospitalisation [None]
